FAERS Safety Report 8230836-0 (Version None)
Quarter: 2012Q1

REPORT INFORMATION
  Report Type: 
  Country: None (occurrence: None)
  Receive Date: 20120323
  Receipt Date: 20120316
  Transmission Date: 20120608
  Serious: Yes (Hospitalization)
  Sender: FDA-Public Use
  Company Number: 2012SP000805

PATIENT
  Age: 64 Year
  Sex: Female

DRUGS (2)
  1. TEMAZEPAM [Concomitant]
     Indication: INSOMNIA
     Route: 048
     Dates: start: 20080101
  2. LUNESTA [Suspect]
     Indication: INSOMNIA
     Route: 048
     Dates: start: 20080101, end: 20080101

REACTIONS (3)
  - SOMNAMBULISM [None]
  - DEMENTIA [None]
  - CEREBROVASCULAR ACCIDENT [None]
